FAERS Safety Report 10226825 (Version 1)
Quarter: 2014Q2

REPORT INFORMATION
  Report Type: Spontaneous
  Country: US (occurrence: US)
  Receive Date: 20140610
  Receipt Date: 20140610
  Transmission Date: 20141212
  Serious: Yes (Hospitalization)
  Sender: FDA-Public Use
  Company Number: US-BIOGENIDEC-2014BI053861

PATIENT
  Sex: Female

DRUGS (3)
  1. TYSABRI [Suspect]
     Indication: MULTIPLE SCLEROSIS
     Route: 042
     Dates: start: 20130531
  2. AVONEX [Concomitant]
     Indication: MULTIPLE SCLEROSIS
     Route: 030
  3. AVONEX [Concomitant]
     Indication: MULTIPLE SCLEROSIS
     Route: 030
     Dates: start: 20110630

REACTIONS (14)
  - Convulsion [Unknown]
  - Adverse drug reaction [Unknown]
  - Drug withdrawal syndrome [Unknown]
  - Spinal fracture [Unknown]
  - Multiple sclerosis relapse [Unknown]
  - Emotional distress [Unknown]
  - Memory impairment [Unknown]
  - Fear [Unknown]
  - Pain [Unknown]
  - Anxiety [Unknown]
  - Stress [Unknown]
  - Muscle spasms [Unknown]
  - Migraine [Unknown]
  - Fatigue [Unknown]
